FAERS Safety Report 8189909-3 (Version None)
Quarter: 2012Q1

REPORT INFORMATION
  Report Type: 
  Country: None (occurrence: None)
  Receive Date: 20120307
  Receipt Date: 20120227
  Transmission Date: 20120608
  Serious: Yes (Hospitalization)
  Sender: FDA-Public Use
  Company Number: US-JNJFOC-20120210627

PATIENT
  Sex: Female
  Weight: 56.7 kg

DRUGS (11)
  1. REMICADE [Suspect]
     Route: 042
     Dates: start: 20090101
  2. VITAMIN A [Concomitant]
     Route: 065
  3. REMICADE [Suspect]
     Indication: CROHN'S DISEASE
     Route: 042
     Dates: start: 20110101, end: 20110101
  4. ASACOL [Concomitant]
     Indication: COLITIS
     Dosage: INDICATION: COAT INTESTINE
     Route: 048
     Dates: start: 20080101
  5. REMICADE [Suspect]
     Indication: COLITIS ULCERATIVE
     Route: 042
     Dates: start: 20110101, end: 20110101
  6. REMICADE [Suspect]
     Route: 042
     Dates: start: 20090101
  7. ACTONEL [Concomitant]
     Indication: OSTEOPOROSIS
     Route: 065
  8. PREDNISONE TAB [Concomitant]
     Indication: CROHN'S DISEASE
     Route: 065
  9. REMICADE [Suspect]
     Route: 042
     Dates: start: 20100101, end: 20101201
  10. REMICADE [Suspect]
     Route: 042
     Dates: start: 20100101, end: 20101201
  11. VITAMIN D [Concomitant]
     Route: 065

REACTIONS (12)
  - WEIGHT INCREASED [None]
  - HEADACHE [None]
  - INFLUENZA [None]
  - OROPHARYNGEAL PAIN [None]
  - HERPES ZOSTER [None]
  - CONDITION AGGRAVATED [None]
  - EATING DISORDER [None]
  - DYSPHAGIA [None]
  - BODY HEIGHT DECREASED [None]
  - DIARRHOEA [None]
  - RECTAL HAEMORRHAGE [None]
  - ABNORMAL LOSS OF WEIGHT [None]
